FAERS Safety Report 7875964 (Version 12)
Quarter: 2019Q3

REPORT INFORMATION
  Report Type: Report from Study
  Country: DE (occurrence: DE)
  Receive Date: 20110329
  Receipt Date: 20190923
  Transmission Date: 20191005
  Serious: Yes (Hospitalization)
  Sender: FDA-Public Use
  Company Number: PHHO2010DE14489

PATIENT
  Age: 67 Year
  Sex: Male
  Weight: 72 kg

DRUGS (1)
  1. AMN107 [Suspect]
     Active Substance: NILOTINIB
     Indication: GASTROINTESTINAL STROMAL TUMOUR
     Dosage: 400 MG, BID
     Route: 048
     Dates: start: 20091002, end: 20110511

REACTIONS (4)
  - Peripheral arterial occlusive disease [Recovered/Resolved]
  - Coronary artery disease [Recovering/Resolving]
  - Vascular stent stenosis [Recovered/Resolved]
  - Concomitant disease progression [Recovered/Resolved]

NARRATIVE: CASE EVENT DATE: 20110303
